FAERS Safety Report 23161254 (Version 1)
Quarter: 2023Q4

REPORT INFORMATION
  Report Type: Spontaneous
  Country: FR (occurrence: FR)
  Receive Date: 20231108
  Receipt Date: 20231108
  Transmission Date: 20240109
  Serious: Yes (Other)
  Sender: FDA-Public Use
  Company Number: FR-JNJFOC-20231073757

PATIENT
  Age: 38 Year
  Sex: Male

DRUGS (3)
  1. DEXAMETHASONE [Suspect]
     Active Substance: DEXAMETHASONE
     Indication: Plasma cell myeloma
     Dosage: 40 MG/DOSE 2 DOSES/WEEK 2 WEEK(S)/CYCLE
     Route: 065
     Dates: end: 20181231
  2. VELCADE [Suspect]
     Active Substance: BORTEZOMIB
     Indication: Plasma cell myeloma
     Dosage: 1.3 MG/DOSE 2 DOSES/WEEK 2 WEEK(S)/CYCLE
     Route: 065
     Dates: end: 20181231
  3. CYCLOPHOSPHAMIDE [Suspect]
     Active Substance: CYCLOPHOSPHAMIDE
     Indication: Plasma cell myeloma
     Dosage: 1420 MG/DOSE 1 DOSE(S)/WEEK 2 WEEK(S)/CYCLE
     Route: 065
     Dates: end: 20181231

REACTIONS (3)
  - Renal impairment [Unknown]
  - Off label use [Unknown]
  - Intentional product use issue [Unknown]
